FAERS Safety Report 7010253 (Version 3)
Quarter: 2014Q3

REPORT INFORMATION
  Report Type: Spontaneous
  Country: US (occurrence: None)
  Receive Date: 20090526
  Receipt Date: 20140919
  Transmission Date: 20150326
  Serious: Yes (Hospitalization, Other)
  Sender: FDA-Public Use
  Company Number: 2009S1004144

PATIENT
  Age: 65 Year
  Sex: Female

DRUGS (9)
  1. PHOSPHO-SODA [Suspect]
     Active Substance: SODIUM PHOSPHATE, DIBASIC\SODIUM PHOSPHATE, MONOBASIC
     Indication: COLONOSCOPY
     Dosage: 2 IN 1 DAYS, ORAL
     Route: 048
     Dates: start: 20080720, end: 20080720
  2. ATENOLOL. [Concomitant]
     Active Substance: ATENOLOL
  3. PHENERGAN [Concomitant]
     Active Substance: PROMETHAZINE HYDROCHLORIDE
  4. ALTACE (RAMIPRIL) [Concomitant]
  5. SIMVASTATIN. [Concomitant]
     Active Substance: SIMVASTATIN
  6. ALPRAZOLAM. [Concomitant]
     Active Substance: ALPRAZOLAM
  7. TYLENOL [Concomitant]
     Active Substance: ACETAMINOPHEN
  8. AVALIDE (HYDROCHLOROTHIAZIDE, IRBESARTAN) [Concomitant]
  9. DILTIAZEM ER (DILTIAZEM HYDROCHLORIDE) [Concomitant]

REACTIONS (12)
  - Procedural vomiting [None]
  - Metabolic acidosis [None]
  - Anaemia [None]
  - Intra-abdominal pressure increased [None]
  - Abdominal pain [None]
  - Renal failure acute [None]
  - Renal failure chronic [None]
  - Essential hypertension [None]
  - Aphagia [None]
  - Dehydration [None]
  - Post procedural complication [None]
  - Nausea [None]

NARRATIVE: CASE EVENT DATE: 20080720
